FAERS Safety Report 17803994 (Version 2)
Quarter: 2020Q2

REPORT INFORMATION
  Report Type: Spontaneous
  Country: FR (occurrence: FR)
  Receive Date: 20200519
  Receipt Date: 20200522
  Transmission Date: 20200714
  Serious: Yes (Other)
  Sender: FDA-Public Use
  Company Number: FR-PFIZER INC-2020198432

PATIENT
  Age: 9 Year
  Sex: Female

DRUGS (3)
  1. NEBCINE [Concomitant]
     Active Substance: TOBRAMYCIN
     Indication: BRONCHITIS
     Dosage: UNK
  2. VORICONAZOLE. [Suspect]
     Active Substance: VORICONAZOLE
     Indication: BRONCHITIS
     Dosage: 200 MG, DAILY
  3. TAZOCILLINE [Concomitant]
     Active Substance: PIPERACILLIN SODIUM\TAZOBACTAM SODIUM
     Indication: BRONCHITIS
     Dosage: UNK

REACTIONS (1)
  - Lentigo [Not Recovered/Not Resolved]
